FAERS Safety Report 17188484 (Version 1)
Quarter: 2019Q4

REPORT INFORMATION
  Report Type: Spontaneous
  Country: US (occurrence: US)
  Receive Date: 20191222
  Receipt Date: 20191222
  Transmission Date: 20200122
  Serious: No
  Sender: FDA-Public Use
  Company Number: US-ORION CORPORATION ORION PHARMA-ENTC2019-0211

PATIENT
  Sex: Female

DRUGS (2)
  1. LEVODOPA-CARBIDOPA-ENTACAPONE [Suspect]
     Active Substance: CARBIDOPA\ENTACAPONE\LEVODOPA
     Indication: PARKINSON^S DISEASE
     Dosage: STRENGTH: 100MG/25/MG/200MG
     Route: 065
     Dates: start: 20190703
  2. GABAPENTIN. [Concomitant]
     Active Substance: GABAPENTIN
     Route: 065

REACTIONS (4)
  - Asthenia [Unknown]
  - Chromaturia [Unknown]
  - Fatigue [Unknown]
  - Hypotension [Unknown]
